FAERS Safety Report 6868365-9 (Version None)
Quarter: 2010Q3

REPORT INFORMATION
  Report Type: 
  Country: None (occurrence: None)
  Receive Date: 20100722
  Receipt Date: 20080526
  Transmission Date: 20110219
  Serious: No
  Sender: FDA-Public Use
  Company Number: US-PFIZER INC-2008044846

PATIENT
  Sex: Male
  Weight: 104.33 kg

DRUGS (4)
  1. CHANTIX [Suspect]
     Indication: SMOKING CESSATION THERAPY
     Route: 048
     Dates: start: 20080201
  2. LISDEXAMFETAMINE DIMESYLATE (VYVANSE) [Concomitant]
     Indication: ATTENTION DEFICIT/HYPERACTIVITY DISORDER
     Dates: start: 20080401
  3. BENICAR [Concomitant]
     Indication: HYPERTENSION
     Dates: start: 20080401
  4. TYLENOL [Concomitant]

REACTIONS (6)
  - ABDOMINAL DISCOMFORT [None]
  - BLOOD CHOLESTEROL INCREASED [None]
  - FATIGUE [None]
  - HOT FLUSH [None]
  - MYALGIA [None]
  - NAUSEA [None]
